FAERS Safety Report 5179426-7 (Version None)
Quarter: 2006Q4

REPORT INFORMATION
  Report Type: 
  Country: None (occurrence: None)
  Receive Date: 20061219
  Receipt Date: 20061204
  Transmission Date: 20070319
  Serious: Yes (Other)
  Sender: FDA-Public Use
  Company Number: MX-ELI_LILLY_AND_COMPANY-MX200612000724

PATIENT
  Age: 76 Year
  Sex: Female
  Weight: 77 kg

DRUGS (5)
  1. FORTEO [Suspect]
     Indication: OSTEOPOROSIS
     Dosage: 20 UG, DAILY (1/D)
     Route: 058
     Dates: start: 20061001
  2. ISOSORBIDE MONONITRATE [Concomitant]
     Indication: CARDIAC DISORDER
  3. CITRACAL [Concomitant]
     Indication: OSTEOPOROSIS
  4. CALCORT /USA/ [Concomitant]
     Dosage: 6 MG, UNK
  5. MAGNESIUM [Concomitant]
     Indication: GASTRIC DISORDER
     Dosage: 40 MG, UNK

REACTIONS (1)
  - HYPOAESTHESIA [None]
